FAERS Safety Report 7008034-8 (Version None)
Quarter: 2010Q3

REPORT INFORMATION
  Report Type: 
  Country: None (occurrence: None)
  Receive Date: 20100922
  Receipt Date: 20100908
  Transmission Date: 20110219
  Serious: Yes (Hospitalization)
  Sender: FDA-Public Use
  Company Number: JP-EISAI INC.-E2090-01288-SPO-JP

PATIENT
  Sex: Female

DRUGS (5)
  1. EXCEGRAN [Suspect]
     Dosage: 200 MG DAILY
     Route: 048
     Dates: start: 20100529, end: 20100801
  2. MAGMITT [Concomitant]
     Indication: CONSTIPATION
     Dosage: 1500 MG DAILY
     Route: 048
     Dates: start: 20100514, end: 20100722
  3. GLYBURIDE [Concomitant]
     Indication: DIABETES MELLITUS
     Dosage: 1.25 MG DAILY
     Route: 048
     Dates: start: 20100522, end: 20100723
  4. TRANEXAMIC ACID [Concomitant]
     Dates: start: 20100722
  5. GOREISAN [Concomitant]
     Dosage: 5 GRAMS DAILY
     Route: 048
     Dates: start: 20100722

REACTIONS (1)
  - GRANULOCYTOPENIA [None]
